FAERS Safety Report 4854661-3 (Version None)
Quarter: 2005Q4

REPORT INFORMATION
  Report Type: 
  Country: None (occurrence: None)
  Receive Date: 20051215
  Receipt Date: 20051206
  Transmission Date: 20060501
  Serious: Yes (Death, Other)
  Sender: FDA-Public Use
  Company Number: US-MERCK-0512USA01910

PATIENT
  Age: 67 Year
  Sex: Female

DRUGS (1)
  1. VIOXX [Suspect]
     Route: 048
     Dates: start: 20010901, end: 20020801

REACTIONS (8)
  - ADVERSE EVENT [None]
  - ANXIETY [None]
  - CEREBROVASCULAR ACCIDENT [None]
  - DEATH [None]
  - INJURY [None]
  - MYOCARDIAL INFARCTION [None]
  - PAIN [None]
  - PULMONARY EMBOLISM [None]
